FAERS Safety Report 5556782-9 (Version None)
Quarter: 2007Q4

REPORT INFORMATION
  Report Type: 
  Country: None (occurrence: None)
  Receive Date: 20071130
  Receipt Date: 20070723
  Transmission Date: 20080405
  Serious: No
  Sender: FDA-Public Use
  Company Number: 2007PV028840

PATIENT
  Age: 50 Year
  Sex: Female

DRUGS (7)
  1. EXENATIDE(EXENATIDE) PEN,DISPOSABLE [Suspect]
     Indication: TYPE 2 DIABETES MELLITUS
     Dosage: 5 UG, 2/D, SUBCUTANEOUS, 10 UG, 2/D, SUBCUTANEOUOS,
     Route: 058
     Dates: start: 20070101, end: 20070101
  2. EXENATIDE(EXENATIDE) PEN,DISPOSABLE [Suspect]
     Indication: TYPE 2 DIABETES MELLITUS
     Dosage: 5 UG, 2/D, SUBCUTANEOUS, 10 UG, 2/D, SUBCUTANEOUOS,
     Route: 058
     Dates: start: 20070201, end: 20070101
  3. EXENATIDE(EXENATIDE) PEN,DISPOSABLE [Suspect]
     Indication: TYPE 2 DIABETES MELLITUS
     Dosage: 5 UG, 2/D, SUBCUTANEOUS, 10 UG, 2/D, SUBCUTANEOUOS,
     Route: 058
     Dates: start: 20061231, end: 20070201
  4. EXENATIDE(EXENATIDE) PEN,DISPOSABLE [Suspect]
     Indication: TYPE 2 DIABETES MELLITUS
     Dosage: 5 UG, 2/D, SUBCUTANEOUS, 10 UG, 2/D, SUBCUTANEOUOS,
     Route: 058
     Dates: start: 20070101
  5. ASPIRIN [Concomitant]
  6. AMARYL [Concomitant]
  7. METFORMIN HCL [Concomitant]

REACTIONS (9)
  - BLOOD GLUCOSE DECREASED [None]
  - BLOOD GLUCOSE FLUCTUATION [None]
  - BLOOD GLUCOSE INCREASED [None]
  - INJECTION SITE BRUISING [None]
  - INJECTION SITE PAIN [None]
  - NAUSEA [None]
  - SOMNOLENCE [None]
  - TREMOR [None]
  - UPPER LIMB FRACTURE [None]
